FAERS Safety Report 21745734 (Version 2)
Quarter: 2022Q4

REPORT INFORMATION
  Report Type: Spontaneous
  Country: US (occurrence: US)
  Receive Date: 20221219
  Receipt Date: 20221226
  Transmission Date: 20230113
  Serious: Yes (Other)
  Sender: FDA-Public Use
  Company Number: US-ORGANON-O2212USA001105

PATIENT
  Age: 26 Year
  Sex: Female
  Weight: 99.773 kg

DRUGS (1)
  1. NEXPLANON [Suspect]
     Active Substance: ETONOGESTREL
     Indication: Contraception
     Dosage: 1 IMPLANT FOR 3 YEARS
     Route: 059
     Dates: start: 20191001, end: 202002

REACTIONS (2)
  - Idiopathic intracranial hypertension [Not Recovered/Not Resolved]
  - Mass [Unknown]

NARRATIVE: CASE EVENT DATE: 20191015
